FAERS Safety Report 16095459 (Version 1)
Quarter: 2019Q1

REPORT INFORMATION
  Report Type: Spontaneous
  Country: HR (occurrence: HR)
  Receive Date: 20190320
  Receipt Date: 20190320
  Transmission Date: 20190418
  Serious: Yes (Other)
  Sender: FDA-Public Use
  Company Number: HR-009507513-1903HRV006556

PATIENT
  Age: 66 Year
  Sex: Female

DRUGS (4)
  1. ARCOXIA [Concomitant]
     Active Substance: ETORICOXIB
     Indication: BACK PAIN
     Dosage: 60 MILLIGRAM, QD
     Route: 048
  2. DALNEVA [Concomitant]
  3. ATORIS [Concomitant]
     Active Substance: ATORVASTATIN CALCIUM
  4. JANUMET [Suspect]
     Active Substance: METFORMIN HYDROCHLORIDE\SITAGLIPTIN PHOSPHATE
     Indication: TYPE 2 DIABETES MELLITUS
     Dosage: SITAGLIPTIN 50 MG + METFORMIN 850 MG, BID
     Route: 048
     Dates: start: 2016

REACTIONS (3)
  - Back pain [Not Recovered/Not Resolved]
  - Polyneuropathy [Not Recovered/Not Resolved]
  - Vitamin B12 decreased [Not Recovered/Not Resolved]

NARRATIVE: CASE EVENT DATE: 2018
